FAERS Safety Report 24830201 (Version 3)
Quarter: 2025Q2

REPORT INFORMATION
  Report Type: Spontaneous
  Country: US (occurrence: US)
  Receive Date: 20250110
  Receipt Date: 20250606
  Transmission Date: 20250716
  Serious: No
  Sender: NOVEN
  Company Number: US-NOVEN PHARMACEUTICALS, INC.-2024-NOV-US001239

PATIENT
  Sex: Female

DRUGS (2)
  1. XELSTRYM [Suspect]
     Active Substance: DEXTROAMPHETAMINE
     Indication: Attention deficit hyperactivity disorder
     Route: 062
     Dates: start: 2024, end: 2024
  2. CORTISONE [Concomitant]
     Active Substance: CORTISONE
     Indication: Application site rash
     Route: 061

REACTIONS (14)
  - Erythema [Not Recovered/Not Resolved]
  - Application site paraesthesia [Not Recovered/Not Resolved]
  - Application site irritation [Unknown]
  - Application site rash [Recovering/Resolving]
  - Application site pain [Not Recovered/Not Resolved]
  - Application site swelling [Not Recovered/Not Resolved]
  - Application site pruritus [Not Recovered/Not Resolved]
  - Application site erythema [Not Recovered/Not Resolved]
  - Product administered at inappropriate site [Recovered/Resolved]
  - Adhesive tape use [Recovered/Resolved]
  - Wrong technique in product usage process [Recovered/Resolved]
  - Product dose omission issue [Recovered/Resolved]
  - Product adhesion issue [Recovered/Resolved]
  - Device issue [Recovered/Resolved]

NARRATIVE: CASE EVENT DATE: 20240101
